FAERS Safety Report 6746737-0 (Version None)
Quarter: 2010Q2

REPORT INFORMATION
  Report Type: 
  Country: None (occurrence: None)
  Receive Date: 20100528
  Receipt Date: 20090619
  Transmission Date: 20101027
  Serious: No
  Sender: FDA-Public Use
  Company Number: A0792519A

PATIENT
  Age: 40 Year
  Sex: Male

DRUGS (2)
  1. VENTOLIN [Suspect]
     Dosage: 2PUFF FOUR TIMES PER DAY
     Route: 055
     Dates: start: 20090605, end: 20090619
  2. PREVACID [Concomitant]

REACTIONS (1)
  - ACNE [None]
